FAERS Safety Report 23988706 (Version 2)
Quarter: 2024Q2

REPORT INFORMATION
  Report Type: Spontaneous
  Country: US (occurrence: US)
  Receive Date: 20240619
  Receipt Date: 20240626
  Transmission Date: 20240716
  Serious: Yes (Other)
  Sender: FDA-Public Use
  Company Number: US-TAKEDA-2024TUS060087

PATIENT
  Age: 21 Year
  Sex: Male

DRUGS (3)
  1. LIALDA [Suspect]
     Active Substance: MESALAMINE
     Indication: Colitis ulcerative
     Dosage: 4 DOSAGE FORM, QD
     Route: 048
     Dates: start: 20231201
  2. LIALDA [Suspect]
     Active Substance: MESALAMINE
     Dosage: 1.2 GRAM, QID
     Route: 065
     Dates: start: 202312
  3. LIALDA [Suspect]
     Active Substance: MESALAMINE
     Dosage: 4 DOSAGE FORM, QD
     Route: 048

REACTIONS (1)
  - Product residue present [Not Recovered/Not Resolved]

NARRATIVE: CASE EVENT DATE: 20240315
